FAERS Safety Report 7301289-1 (Version None)
Quarter: 2011Q1

REPORT INFORMATION
  Report Type: 
  Country: None (occurrence: None)
  Receive Date: 20110218
  Receipt Date: 20110208
  Transmission Date: 20110831
  Serious: Yes (Other)
  Sender: FDA-Public Use
  Company Number: US-SANOFI-AVENTIS-2011SA003420

PATIENT
  Age: 52 Year
  Sex: Female

DRUGS (10)
  1. SIMVASTATIN [Concomitant]
     Dates: start: 20100101
  2. WARFARIN [Concomitant]
  3. OMEPRAZOLE [Concomitant]
  4. FISH OIL [Concomitant]
     Indication: CARDIAC DISORDER
     Dates: start: 20060101
  5. COUMADIN [Concomitant]
     Indication: ATRIAL FIBRILLATION
     Dates: start: 20100101
  6. MAGNESIUM OXIDE [Concomitant]
     Dates: start: 20100101
  7. PROGRAF [Concomitant]
     Indication: PROPHYLAXIS AGAINST TRANSPLANT REJECTION
     Dates: start: 20070101
  8. CELLCEPT [Concomitant]
     Indication: PROPHYLAXIS AGAINST TRANSPLANT REJECTION
     Dates: start: 20070101
  9. FOLIC ACID [Concomitant]
  10. MULTAQ [Suspect]
     Indication: ATRIAL FIBRILLATION
     Route: 048
     Dates: start: 20101203, end: 20101230

REACTIONS (3)
  - BLOOD CREATININE INCREASED [None]
  - RENAL IMPAIRMENT [None]
  - GLOMERULAR FILTRATION RATE DECREASED [None]
